FAERS Safety Report 11789339 (Version 2)
Quarter: 2016Q2

REPORT INFORMATION
  Report Type: Spontaneous
  Country: SE (occurrence: SE)
  Receive Date: 20151201
  Receipt Date: 20160602
  Transmission Date: 20160815
  Serious: Yes (Death)
  Sender: FDA-Public Use
  Company Number: SE-ASTRAZENECA-2015SF19883

PATIENT
  Age: 71 Year
  Sex: Male

DRUGS (15)
  1. MOVENTIG [Suspect]
     Active Substance: NALOXEGOL OXALATE
     Indication: CONSTIPATION
     Dosage: 1X1 TABLET 30 MINUTES BEFORE FIRST MEAL
     Route: 048
     Dates: start: 20151002
  2. CILAXORAL [Concomitant]
     Indication: CONSTIPATION
     Dosage: SOLUTION 7.5 MG/ML, 0+0+30+0, 30 DROPS AT DINNER AS REQUIRED
     Route: 048
  3. GLYCERYL TRINITRATE [Concomitant]
     Active Substance: NITROGLYCERIN
     Indication: ANGINA PECTORIS
     Dosage: 0.4 MG/DOSE, 1-2 DOSES AS REQUIRED
     Route: 060
  4. MYCOSTATIN [Concomitant]
     Active Substance: NYSTATIN
     Indication: FUNGAL TEST POSITIVE
     Dosage: 100000 IU/ML, 1+1+1+1, 1 ML SOLUTION 4 TIMES A DAY, AS REQUIRED
     Route: 048
  5. OXIKODON [Concomitant]
     Indication: PAIN
     Dosage: ACTAVIS, 2 TABLETS AS REQUIRED
  6. ZOPIKLON PILUM [Concomitant]
     Indication: SLEEP DISORDER
     Dosage: 0+0+0+1.5, 1.5 TABLETS ONCE A DAY AT NIGHT
  7. NOVALUCOL [Concomitant]
     Indication: GASTROOESOPHAGEAL REFLUX DISEASE
     Dosage: 1 CHEWING TABLET AS REQUIRED
  8. HALDOL [Concomitant]
     Active Substance: HALOPERIDOL
     Dosage: 0.5+0+0.5+0, 0.5 TABLET FOR BREAKFAST, 0.5 TABLET FOR DINNER
  9. MIRTAZAPIN [Concomitant]
     Active Substance: MIRTAZAPINE
     Dosage: ACTAVIS, 0+0+0+1, 1 TABLET AT NIGHT
  10. PANTOPRAZOL [Concomitant]
     Active Substance: PANTOPRAZOLE SODIUM
     Indication: GASTROOESOPHAGEAL REFLUX DISEASE
     Dosage: ACTAVIS, 1+0+1+0, 1 TABLET AT BREAKFAST, 1 TABLET AT DINNER
  11. FENTANYL. [Concomitant]
     Active Substance: FENTANYL
     Dosage: ACTAVIS, DEPOT PATCH 50 MICROGRAMS/HOUR, ONE PATCH THAT IS CHANGED EVERY THIRD DAY, COMBINED WITH...
  12. FENTANYL. [Concomitant]
     Active Substance: FENTANYL
     Dosage: ACTAVIS, DEPOT PATCH 100 MICROGRAMS/HOUR, ONE PATCH THAT IS CHANGED EVERY THIRD DAY, COMBINED WIT...
  13. MOVICOL [Concomitant]
     Active Substance: POLYETHYLENE GLYCOL 3350\POTASSIUM CHLORIDE\SODIUM BICARBONATE\SODIUM CHLORIDE
     Indication: CONSTIPATION
     Dosage: 1-3 SACHETS PER DAY AS REQUIRED
     Route: 048
  14. BETAPRED [Concomitant]
     Active Substance: BETAMETHASONE SODIUM PHOSPHATE
     Dosage: ACCORDING TO DOCTOR^S PRESCRIPTION
  15. ACETYLCYSTEIN [Concomitant]
     Active Substance: ACETYLCYSTEINE
     Indication: SECRETION DISCHARGE
     Dosage: ALTERNOVA, 1 TABLET AS REQUIRED

REACTIONS (1)
  - Acute respiratory distress syndrome [Fatal]

NARRATIVE: CASE EVENT DATE: 20151016
